FAERS Safety Report 6369052-6 (Version None)
Quarter: 2009Q3

REPORT INFORMATION
  Report Type: 
  Country: None (occurrence: None)
  Receive Date: 20090922
  Receipt Date: 20090911
  Transmission Date: 20100115
  Serious: Yes (Hospitalization, Other)
  Sender: FDA-Public Use
  Company Number: PHHY2009BR39212

PATIENT
  Sex: Female
  Weight: 73 kg

DRUGS (7)
  1. DIOVAN [Suspect]
     Indication: CARDIAC DISORDER
     Dosage: 80 MG, QD
     Route: 048
  2. BAMIFIX [Concomitant]
     Indication: CARDIAC DISORDER
     Dosage: 300 MG, Q12H
     Route: 048
  3. LASIX [Concomitant]
     Indication: CARDIAC DISORDER
     Dosage: 1 DF, QD
     Route: 048
  4. VASCLIN [Concomitant]
     Indication: CARDIAC DISORDER
     Dosage: 1 DF, QD
     Route: 048
  5. ALDACTONE [Concomitant]
     Indication: CARDIAC DISORDER
     Dosage: 1 DF, QD
     Route: 048
  6. AMARYL [Concomitant]
     Indication: DIABETES MELLITUS
     Dosage: 1 DF, QD
     Route: 048
  7. BISOPROLOL FUMARATE [Concomitant]
     Dosage: 1 DF, QD
     Route: 048

REACTIONS (5)
  - DYSPNOEA [None]
  - HYPOACUSIS [None]
  - MEMORY IMPAIRMENT [None]
  - MYOCARDIAL INFARCTION [None]
  - STENT PLACEMENT [None]
